FAERS Safety Report 6473222-6 (Version None)
Quarter: 2009Q4

REPORT INFORMATION
  Report Type: 
  Country: None (occurrence: None)
  Receive Date: 20091204
  Receipt Date: 20081118
  Transmission Date: 20100525
  Serious: Yes (Other)
  Sender: FDA-Public Use
  Company Number: CA-ELI_LILLY_AND_COMPANY-CA200809005061

PATIENT
  Age: 58 Year
  Sex: Male

DRUGS (23)
  1. FORTEO [Suspect]
     Indication: OSTEOPOROSIS
     Dosage: 20 UG, DAILY (1/D)
     Route: 058
     Dates: start: 20080317, end: 20081103
  2. DILAUDID [Concomitant]
  3. QUININE [Concomitant]
  4. LOSEC [Concomitant]
  5. LASIX [Concomitant]
  6. COVERSYL [Concomitant]
  7. ZOPICLONE [Concomitant]
  8. SLOW-K [Concomitant]
  9. NITROGLYCERIN [Concomitant]
     Route: 062
  10. ASPIRIN [Concomitant]
  11. ZAROXOLYN [Concomitant]
  12. TENORMIN [Concomitant]
  13. FLOVENT [Concomitant]
  14. ATROVENT [Concomitant]
  15. ENBREL [Concomitant]
  16. TYLENOL (CAPLET) [Concomitant]
  17. ALBUTEROL [Concomitant]
  18. AXERT [Concomitant]
  19. CALCIUM WITH VITAMIN D [Concomitant]
  20. ALLOPURINOL [Concomitant]
  21. MULTIVITAMINS, COMBINATIONS [Concomitant]
  22. ROBAXIN [Concomitant]
  23. HYDROMORPH [Concomitant]

REACTIONS (5)
  - BACK PAIN [None]
  - BLOOD CREATININE INCREASED [None]
  - DYSPNOEA [None]
  - PAIN IN EXTREMITY [None]
  - SPINAL FRACTURE [None]
